FAERS Safety Report 7740936-7 (Version None)
Quarter: 2011Q3

REPORT INFORMATION
  Report Type: 
  Country: None (occurrence: None)
  Receive Date: 20110909
  Receipt Date: 20110830
  Transmission Date: 20111222
  Serious: Yes (Death, Other)
  Sender: FDA-Public Use
  Company Number: PHHY2011EC77412

PATIENT
  Sex: Female

DRUGS (1)
  1. DIOVAN [Suspect]
     Indication: HYPERTENSION
     Dosage: 80 MG,DAILY
     Dates: start: 20081127

REACTIONS (4)
  - ANAESTHETIC COMPLICATION [None]
  - FALL [None]
  - DEATH [None]
  - LOWER LIMB FRACTURE [None]
